FAERS Safety Report 21952114 (Version 1)
Quarter: 2023Q1

REPORT INFORMATION
  Report Type: Report from Study
  Country: US (occurrence: US)
  Receive Date: 20230203
  Receipt Date: 20230203
  Transmission Date: 20230417
  Serious: No
  Sender: FDA-Public Use
  Company Number: US-EXELIXIS-CABO-22049511

PATIENT
  Sex: Male

DRUGS (1)
  1. CABOMETYX [Suspect]
     Active Substance: CABOZANTINIB S-MALATE
     Indication: Renal cancer
     Dosage: 40 MG, QD
     Route: 048
     Dates: start: 202201

REACTIONS (11)
  - Toothache [Unknown]
  - Pain in jaw [Unknown]
  - Gingival disorder [Unknown]
  - Sinus congestion [Unknown]
  - Blister [Unknown]
  - Anorectal disorder [Unknown]
  - Flatulence [Unknown]
  - Dyspnoea [Unknown]
  - Gastrointestinal pain [Unknown]
  - Diarrhoea [Unknown]
  - Asthenia [Unknown]
